FAERS Safety Report 15605689 (Version 1)
Quarter: 2018Q4

REPORT INFORMATION
  Report Type: Spontaneous
  Country: LU (occurrence: LU)
  Receive Date: 20181112
  Receipt Date: 20181112
  Transmission Date: 20190205
  Serious: Yes (Hospitalization)
  Sender: FDA-Public Use
  Company Number: LU-ACCORD-091787

PATIENT
  Age: 65 Year
  Sex: Female
  Weight: 61 kg

DRUGS (9)
  1. METHOTREXATE. [Suspect]
     Active Substance: METHOTREXATE
     Indication: RHEUMATOID ARTHRITIS
     Route: 048
  2. EUSAPRIM [Interacting]
     Active Substance: SULFAMETHOXAZOLE\TRIMETHOPRIM
     Indication: PNEUMONIA BACTERIAL
     Route: 042
     Dates: start: 20180504, end: 20180510
  3. LORMETAZEPAM [Concomitant]
     Active Substance: LORMETAZEPAM
     Route: 048
  4. METAMIZOLE/METAMIZOLE MAGNESIUM/METAMIZOLE SODIUM/METAMIZOLE SODIUM MONOHYDRATE [Concomitant]
     Route: 048
  5. LIDOCAINE. [Concomitant]
     Active Substance: LIDOCAINE
     Route: 061
  6. ENOXAPARIN [Concomitant]
     Active Substance: ENOXAPARIN
     Route: 058
  7. CLARITHROMYCIN. [Concomitant]
     Active Substance: CLARITHROMYCIN
     Route: 048
  8. LEVOTHYROXINE. [Concomitant]
     Active Substance: LEVOTHYROXINE
     Route: 048
  9. NYSTATIN. [Concomitant]
     Active Substance: NYSTATIN
     Route: 048

REACTIONS (5)
  - Anaemia [Recovering/Resolving]
  - Cholestasis [Recovering/Resolving]
  - Drug-induced liver injury [Recovering/Resolving]
  - Drug interaction [Unknown]
  - Thrombocytopenia [Recovered/Resolved]

NARRATIVE: CASE EVENT DATE: 20180504
